FAERS Safety Report 5269903-2 (Version None)
Quarter: 2007Q1

REPORT INFORMATION
  Report Type: 
  Country: None (occurrence: None)
  Receive Date: 20070320
  Receipt Date: 20070309
  Transmission Date: 20070707
  Serious: Yes (Life-Threatening, Hospitalization)
  Sender: FDA-Public Use
  Company Number: CN-GLAXOSMITHKLINE-B0462647A

PATIENT
  Age: 1 Month
  Sex: Male

DRUGS (2)
  1. BECOTIDE 50 [Suspect]
     Indication: COUGH
     Route: 055
     Dates: start: 20070305, end: 20070305
  2. GUAIACOL [Concomitant]
     Dates: start: 20070305

REACTIONS (2)
  - CYANOSIS [None]
  - SEPSIS [None]
